FAERS Safety Report 4833391-8 (Version None)
Quarter: 2005Q4

REPORT INFORMATION
  Report Type: 
  Country: None (occurrence: None)
  Receive Date: 20051117
  Receipt Date: 20051104
  Transmission Date: 20060501
  Serious: Yes (Death, Hospitalization)
  Sender: FDA-Public Use
  Company Number: 2005-DE-04587GD

PATIENT
  Age: 47 Year
  Sex: Female

DRUGS (1)
  1. MORPHINE [Suspect]
     Dosage: 20 MG (, SINGLE DOSE),
     Dates: start: 19940201

REACTIONS (3)
  - APALLIC SYNDROME [None]
  - OVERDOSE [None]
  - RESPIRATORY ARREST [None]
